FAERS Safety Report 6275158-2 (Version None)
Quarter: 2009Q3

REPORT INFORMATION
  Report Type: 
  Country: None (occurrence: None)
  Receive Date: 20090721
  Receipt Date: 20090721
  Transmission Date: 20100115
  Serious: Yes (Other)
  Sender: FDA-Public Use
  Company Number: AT-PFIZER INC-2009223187

PATIENT
  Age: 81 Year

DRUGS (8)
  1. MINOXIDIL [Suspect]
     Indication: HYPERTENSION
     Dosage: 10 MG, 2X/DAY
     Route: 048
     Dates: start: 20090525
  2. MINOXIDIL [Suspect]
     Dosage: 5 MG, 2X/DAY
     Dates: end: 20090601
  3. CO-DILATREND [Concomitant]
     Indication: HYPERTENSION
     Dosage: UNK
  4. DILATREND [Concomitant]
     Indication: HYPERTENSION
     Dosage: UNK
  5. DIOVAN [Concomitant]
     Indication: HYPERTENSION
     Dosage: UNK
  6. RILMENIDINE [Concomitant]
     Indication: HYPERTENSION
     Dosage: UNK
  7. AMLODIPINE [Concomitant]
     Indication: HYPERTENSION
     Dosage: UNK
  8. LASIX [Concomitant]
     Dosage: UNK

REACTIONS (3)
  - DYSPNOEA [None]
  - OEDEMA [None]
  - WEIGHT INCREASED [None]
